FAERS Safety Report 19112236 (Version 7)
Quarter: 2025Q4

REPORT INFORMATION
  Report Type: Report from Study
  Country: BR (occurrence: BR)
  Receive Date: 20210408
  Receipt Date: 20251201
  Transmission Date: 20260117
  Serious: Yes (Other)
  Sender: NOVARTIS
  Company Number: NVSC2021BR073842

PATIENT
  Sex: Male

DRUGS (5)
  1. COSENTYX [Suspect]
     Active Substance: SECUKINUMAB
     Indication: Psoriasis
     Dosage: 300 MG, QMO (INJECTION NOS)
     Route: 050
     Dates: start: 20170614
  2. COSENTYX [Suspect]
     Active Substance: SECUKINUMAB
     Indication: Psoriatic arthropathy
     Dosage: UNK, ATTACK DOSE (INJECTION NOS)
     Route: 050
     Dates: start: 2018
  3. COSENTYX [Suspect]
     Active Substance: SECUKINUMAB
     Dosage: UNK (4 LOADING DOSES) (INJECTION NOS)
     Route: 050
  4. COSENTYX [Suspect]
     Active Substance: SECUKINUMAB
     Dosage: UNK (MAINTENANCE DOSE) (INJECTION NOS)
     Route: 050
  5. COSENTYX [Suspect]
     Active Substance: SECUKINUMAB
     Dosage: UNK, QMO (INJECTION NOS)
     Route: 050
     Dates: start: 201908

REACTIONS (25)
  - Myocardial infarction [Recovered/Resolved]
  - Discomfort [Recovered/Resolved]
  - Myocardial infarction [Unknown]
  - Skin haemorrhage [Recovering/Resolving]
  - Skin exfoliation [Recovering/Resolving]
  - Arterial disorder [Not Recovered/Not Resolved]
  - Coronary artery disease [Not Recovered/Not Resolved]
  - Pigmentation disorder [Recovering/Resolving]
  - Wound [Recovering/Resolving]
  - Joint swelling [Unknown]
  - Arthralgia [Recovering/Resolving]
  - Skin discolouration [Recovered/Resolved]
  - Ill-defined disorder [Unknown]
  - Injury [Unknown]
  - Condition aggravated [Recovered/Resolved]
  - Illness [Recovered/Resolved]
  - Condition aggravated [Recovered/Resolved]
  - Symptom recurrence [Recovered/Resolved]
  - Arthritis [Recovered/Resolved]
  - Osteoarthritis [Recovered/Resolved]
  - Hypersensitivity [Recovering/Resolving]
  - Rebound psoriasis [Recovered/Resolved]
  - Therapeutic product effect incomplete [Unknown]
  - Inappropriate schedule of product administration [Unknown]
  - Product availability issue [Unknown]

NARRATIVE: CASE EVENT DATE: 20200101
